FAERS Safety Report 25974560 (Version 2)
Quarter: 2025Q4

REPORT INFORMATION
  Report Type: Spontaneous
  Country: JP (occurrence: JP)
  Receive Date: 20251029
  Receipt Date: 20251216
  Transmission Date: 20260117
  Serious: Yes (Other)
  Sender: CHEPLAPHARM
  Company Number: JP-CHEPLA-2025012194

PATIENT
  Age: 87 Year
  Sex: Male

DRUGS (2)
  1. HYDROXYUREA [Suspect]
     Active Substance: HYDROXYUREA
     Indication: Polycythaemia vera
     Dosage: OVER 20 YEARS
     Route: 048
     Dates: start: 2002
  2. ASPIRIN [Concomitant]
     Active Substance: ASPIRIN
     Indication: Gene mutation

REACTIONS (5)
  - Transient ischaemic attack [Unknown]
  - Transient ischaemic attack [Unknown]
  - Acute myeloid leukaemia [Unknown]
  - Hyperplasia [Unknown]
  - Myelofibrosis [Unknown]

NARRATIVE: CASE EVENT DATE: 20070101
